FAERS Safety Report 24761480 (Version 2)
Quarter: 2024Q4

REPORT INFORMATION
  Report Type: Report from Study
  Country: US (occurrence: US)
  Receive Date: 20241220
  Receipt Date: 20241230
  Transmission Date: 20250115
  Serious: Yes (Hospitalization)
  Sender: EISAI
  Company Number: US-Eisai-EC-2024-179168

PATIENT
  Age: 62 Year
  Sex: Female
  Weight: 127 kg

DRUGS (13)
  1. LENVIMA [Suspect]
     Active Substance: LENVATINIB
     Indication: Endometrial cancer
     Route: 048
     Dates: start: 20241114, end: 202412
  2. ONDANSETRON [Suspect]
     Active Substance: ONDANSETRON
     Indication: Vomiting
     Dosage: DOSE AND FREQUENCY UNKNOWN
     Dates: start: 202411
  3. ELIQUIS [Concomitant]
     Active Substance: APIXABAN
     Dosage: DOSE AND FREQUENCY UNKNOWN
  4. TRAMADOL [Concomitant]
     Active Substance: TRAMADOL
     Dosage: DOSE AND FREQUENCY UNKNOWN
  5. OXYCODONE [Concomitant]
     Active Substance: OXYCODONE
     Dosage: DOSE AND FREQUENCY UNKNOWN
  6. CIPROFLOXACIN [Concomitant]
     Active Substance: CIPROFLOXACIN
     Dosage: DOSE AND FREQUENCY UNKNOWN
  7. LIDOCAINE\PRILOCAINE [Concomitant]
     Active Substance: LIDOCAINE\PRILOCAINE
     Dosage: DOSE AND FREQUENCY UNKNOWN
  8. ACETAMINOPHEN [Concomitant]
     Active Substance: ACETAMINOPHEN
     Dosage: DOSE AND FREQUENCY UNKNOWN
  9. MIRALAX [Concomitant]
     Active Substance: POLYETHYLENE GLYCOL 3350
     Dosage: DOSE AND FREQUENCY UNKNOWN
  10. VITAMIN D [Concomitant]
     Active Substance: VITAMIN D NOS
     Dosage: DOSE AND FREQUENCY UNKNOWN
  11. OMEPRAZOLE [Concomitant]
     Active Substance: OMEPRAZOLE
     Dosage: DOSE AND FREQUENCY UNKNOWN
  12. COMBIVENT RESPIMAT ALLERGY RELIEF [Concomitant]
     Dosage: DOSE AND FREQUENCY UNKNOWN
  13. PROCHLORPERAZINE [Concomitant]
     Active Substance: PROCHLORPERAZINE
     Dosage: DOSE AND FREQUENCY UNKNOWN

REACTIONS (10)
  - Urinary tract infection [Not Recovered/Not Resolved]
  - Sepsis [Unknown]
  - Asthenia [Recovering/Resolving]
  - Nausea [Not Recovered/Not Resolved]
  - Hypertension [Not Recovered/Not Resolved]
  - Vomiting [Not Recovered/Not Resolved]
  - Urine odour abnormal [Not Recovered/Not Resolved]
  - Headache [Not Recovered/Not Resolved]
  - Heart rate increased [Not Recovered/Not Resolved]
  - Hypotension [Recovering/Resolving]

NARRATIVE: CASE EVENT DATE: 20241101
